FAERS Safety Report 10066092 (Version 2)
Quarter: 2014Q2

REPORT INFORMATION
  Report Type: Spontaneous
  Country: US (occurrence: US)
  Receive Date: 20140408
  Receipt Date: 20140408
  Transmission Date: 20141212
  Serious: No
  Sender: FDA-Public Use
  Company Number: US-ASTELLAS-2014US000117

PATIENT
  Sex: Male
  Weight: 86 kg

DRUGS (2)
  1. MYRBETRIQ [Suspect]
     Indication: PRODUCT USED FOR UNKNOWN INDICATION
     Dosage: 50 MG, UID/QD
     Route: 065
     Dates: start: 201312
  2. ANTIHYPERTENSIVES [Concomitant]
     Indication: HYPERTENSION
     Dosage: UNK
     Route: 065

REACTIONS (2)
  - Intentional product misuse [Unknown]
  - Drug ineffective [Unknown]
